FAERS Safety Report 5313820-6 (Version None)
Quarter: 2007Q2

REPORT INFORMATION
  Report Type: 
  Country: None (occurrence: None)
  Receive Date: 20070501
  Receipt Date: 20070427
  Transmission Date: 20071010
  Serious: Yes (Life-Threatening, Hospitalization)
  Sender: FDA-Public Use
  Company Number: US195196

PATIENT
  Age: 42 Year
  Sex: Male
  Weight: 104 kg

DRUGS (6)
  1. ALKERAN [Suspect]
     Indication: STEM CELL TRANSPLANT
     Dates: start: 20060428, end: 20060428
  2. KEPIVANCE [Suspect]
     Indication: STOMATITIS
     Dosage: 5.1MG PER DAY
     Route: 058
     Dates: start: 20060424, end: 20060503
  3. ETOPOSIDE [Suspect]
     Indication: STEM CELL TRANSPLANT
     Dosage: 5130MG PER DAY
     Dates: start: 20060427, end: 20060427
  4. ONDANSETRON [Concomitant]
     Dosage: 8MG PER DAY
     Route: 048
     Dates: start: 20060427, end: 20060429
  5. DEXAMETHASONE 0.5MG TAB [Concomitant]
     Dosage: 8MG ALTERNATE DAYS
     Route: 048
     Dates: start: 20060429, end: 20060430
  6. DOMPERIDONE [Concomitant]
     Dosage: 10MG PER DAY
     Dates: start: 20060502, end: 20060508

REACTIONS (19)
  - ABDOMINAL DISCOMFORT [None]
  - BONE MARROW FAILURE [None]
  - CLOSTRIDIUM DIFFICILE COLITIS [None]
  - DELAYED ENGRAFTMENT [None]
  - FEBRILE NEUTROPENIA [None]
  - GASTROINTESTINAL NECROSIS [None]
  - HYPOTENSION [None]
  - IMPAIRED HEALING [None]
  - INTERNATIONAL NORMALISED RATIO INCREASED [None]
  - INTESTINAL FUNCTIONAL DISORDER [None]
  - JAUNDICE [None]
  - MUCOSAL INFLAMMATION [None]
  - NAUSEA [None]
  - NEUTROPENIC COLITIS [None]
  - PANCYTOPENIA [None]
  - PNEUMATOSIS INTESTINALIS [None]
  - RESPIRATORY FAILURE [None]
  - SEPSIS [None]
  - VOMITING [None]
